FAERS Safety Report 18522196 (Version 2)
Quarter: 2020Q4

REPORT INFORMATION
  Report Type: Report from Study
  Country: US (occurrence: US)
  Receive Date: 20201119
  Receipt Date: 20201209
  Transmission Date: 20210114
  Serious: Yes (Other)
  Sender: FDA-Public Use
  Company Number: US-HORIZON-2020HZN01374

PATIENT
  Sex: Male

DRUGS (1)
  1. TEPEZZA [Suspect]
     Active Substance: TEPROTUMUMAB-TRBW
     Indication: PRODUCT USED FOR UNKNOWN INDICATION

REACTIONS (1)
  - Transient ischaemic attack [Unknown]
